FAERS Safety Report 20082990 (Version 2)
Quarter: 2021Q4

REPORT INFORMATION
  Report Type: Spontaneous
  Country: US (occurrence: US)
  Receive Date: 20211117
  Receipt Date: 20211215
  Transmission Date: 20220303
  Serious: Yes (Other)
  Sender: FDA-Public Use
  Company Number: US-ELI_LILLY_AND_COMPANY-US202111007204

PATIENT
  Sex: Male

DRUGS (3)
  1. HUMATROPE [Suspect]
     Active Substance: SOMATROPIN
     Indication: Thyroid disorder
     Dosage: 0.2 MG, DAILY
     Route: 058
     Dates: start: 1990
  2. HUMATROPE [Suspect]
     Active Substance: SOMATROPIN
     Indication: Thyroid disorder
     Dosage: 0.2 MG, DAILY
  3. HUMATROPE [Suspect]
     Active Substance: SOMATROPIN
     Dosage: 0.2 MG, DAILY
     Route: 058

REACTIONS (1)
  - Deafness [Unknown]
